FAERS Safety Report 11322957 (Version 1)
Quarter: 2015Q3

REPORT INFORMATION
  Report Type: Spontaneous
  Country: US (occurrence: None)
  Receive Date: 20150729
  Receipt Date: 20150729
  Transmission Date: 20151125
  Serious: Yes (Life-Threatening, Hospitalization)
  Sender: FDA-Public Use
  Company Number: None

PATIENT
  Age: 46 Year
  Sex: Female
  Weight: 52.62 kg

DRUGS (7)
  1. INSULIN PUMP [Concomitant]
     Active Substance: INSULIN NOS
  2. INVOKANA [Suspect]
     Active Substance: CANAGLIFLOZIN
     Indication: DIABETES MELLITUS
     Dosage: 300 MG PILL, ONCE DAILY
     Dates: end: 20150712
  3. YASMIN [Concomitant]
     Active Substance: DROSPIRENONE\ETHINYL ESTRADIOL
  4. SIMVASTATIN. [Concomitant]
     Active Substance: SIMVASTATIN
  5. BUPROPRION [Concomitant]
     Active Substance: BUPROPION
  6. VITAMIN D3 [Concomitant]
     Active Substance: CHOLECALCIFEROL
  7. SINGULAIRE [Concomitant]

REACTIONS (3)
  - Vomiting [None]
  - Diabetic ketoacidosis [None]
  - Malaise [None]

NARRATIVE: CASE EVENT DATE: 20150712
